FAERS Safety Report 4999990-8 (Version None)
Quarter: 2006Q2

REPORT INFORMATION
  Report Type: 
  Country: None (occurrence: None)
  Receive Date: 20060501
  Receipt Date: 20060418
  Transmission Date: 20061013
  Serious: Yes (Hospitalization)
  Sender: FDA-Public Use
  Company Number: 2006056004

PATIENT
  Age: 80 Year
  Sex: Male
  Weight: 50 kg

DRUGS (1)
  1. IRINOTECAN HCL [Suspect]
     Indication: COLON CANCER
     Dosage: 100 MG/M2 (INTERMITTENT (100 MG)), INTRAVENOUS
     Route: 042
     Dates: start: 20050802, end: 20060131

REACTIONS (6)
  - DIARRHOEA [None]
  - INTERSTITIAL LUNG DISEASE [None]
  - LEUKOPENIA [None]
  - NEUTROPENIA [None]
  - PYREXIA [None]
  - VOMITING [None]
